FAERS Safety Report 5175852-0 (Version None)
Quarter: 2006Q4

REPORT INFORMATION
  Report Type: 
  Country: None (occurrence: None)
  Receive Date: 20061215
  Receipt Date: 20061201
  Transmission Date: 20070319
  Serious: Yes (Hospitalization, Disabling)
  Sender: FDA-Public Use
  Company Number: PHBS2006DK19231

PATIENT
  Age: 58 Year
  Sex: Female

DRUGS (16)
  1. FURIX [Concomitant]
     Dosage: 40 MG/D
     Route: 048
  2. KALEORID [Concomitant]
     Dosage: 750 MG/D
     Route: 048
  3. MAGNESIA [Concomitant]
     Dosage: 2 DF, QD
     Route: 048
  4. ACTRAPID HUMAN [Concomitant]
     Dosage: 24 IU/D
  5. LEVEMIR [Concomitant]
     Dosage: 18 IU/D
  6. CODEINE [Concomitant]
     Dosage: 50 MG, PRN
     Route: 048
  7. DOLOL [Concomitant]
     Dosage: 50 MG, PRN
     Route: 048
  8. HJERTEMAGNYL [Concomitant]
     Dosage: 75 MG/D
     Route: 048
  9. IMIPRAMINE [Concomitant]
     Dosage: 100 MG/D
     Route: 048
  10. NORVASC [Concomitant]
     Dosage: 10 MG/D
     Route: 048
  11. ZOMETA [Suspect]
     Indication: MULTIPLE MYELOMA
     Dosage: 4 MG, QMO
     Dates: start: 20041124, end: 20051031
  12. APROVEL [Concomitant]
     Dosage: 300 MG/D
     Route: 048
  13. VITAMIN D [Concomitant]
  14. ZOCOR [Concomitant]
     Dosage: 80 MG/D
     Route: 048
  15. CAPTOL [Concomitant]
     Dosage: 12.5 MG/D
     Route: 048
  16. AREDIA [Suspect]
     Indication: MULTIPLE MYELOMA
     Dosage: 90 MG/D

REACTIONS (8)
  - BLOOD CREATININE INCREASED [None]
  - FLUSHING [None]
  - HAEMOGLOBIN DECREASED [None]
  - MALIGNANT NEOPLASM PROGRESSION [None]
  - OSTEONECROSIS [None]
  - PAIN IN JAW [None]
  - SWELLING [None]
  - ULCER [None]
